FAERS Safety Report 22900852 (Version 4)
Quarter: 2024Q1

REPORT INFORMATION
  Report Type: Report from Study
  Country: MX (occurrence: MX)
  Receive Date: 20230904
  Receipt Date: 20240320
  Transmission Date: 20240410
  Serious: Yes (Hospitalization)
  Sender: FDA-Public Use
  Company Number: MX-002147023-NVSC2023MX105456

PATIENT
  Age: 44 Year
  Sex: Female
  Weight: 64 kg

DRUGS (3)
  1. OFATUMUMAB [Suspect]
     Active Substance: OFATUMUMAB
     Indication: Multiple sclerosis
     Dosage: 20 MG, QMO
     Route: 058
     Dates: start: 20230401, end: 20230812
  2. OFATUMUMAB [Suspect]
     Active Substance: OFATUMUMAB
     Dosage: 20 MG, Q5W
     Route: 058
     Dates: start: 20230812
  3. OFATUMUMAB [Suspect]
     Active Substance: OFATUMUMAB
     Dosage: 20 MG, QMO (1 APPLICATION, IN THE ABDOMEN)
     Route: 058

REACTIONS (25)
  - Anal fistula [Unknown]
  - Anal abscess [Unknown]
  - Amoebiasis [Recovered/Resolved]
  - Gastric infection [Recovered/Resolved]
  - Diarrhoea [Not Recovered/Not Resolved]
  - Gastritis [Unknown]
  - Fatigue [Recovered/Resolved]
  - Decreased immune responsiveness [Recovered/Resolved]
  - Urinary tract infection [Recovered/Resolved]
  - Pyrexia [Recovered/Resolved]
  - Headache [Not Recovered/Not Resolved]
  - Alopecia [Recovered/Resolved]
  - Fluid retention [Not Recovered/Not Resolved]
  - Mood altered [Recovering/Resolving]
  - Weight increased [Unknown]
  - Anxiety [Unknown]
  - Asthenia [Not Recovered/Not Resolved]
  - Myalgia [Unknown]
  - Influenza [Recovered/Resolved]
  - Blood glucose increased [Unknown]
  - Blood triglycerides increased [Unknown]
  - Impaired healing [Not Recovered/Not Resolved]
  - Weight decreased [Unknown]
  - Injection site induration [Recovered/Resolved]
  - Off label use [Unknown]

NARRATIVE: CASE EVENT DATE: 20230401
